FAERS Safety Report 17890294 (Version 1)
Quarter: 2020Q2

REPORT INFORMATION
  Report Type: Spontaneous
  Country: US (occurrence: US)
  Receive Date: 20200612
  Receipt Date: 20200612
  Transmission Date: 20200714
  Serious: Yes (Hospitalization, Disabling, Other)
  Sender: FDA-Public Use
  Company Number: None

PATIENT
  Age: 40 Year
  Sex: Female
  Weight: 67.5 kg

DRUGS (4)
  1. MULTIVITAMIN [Concomitant]
     Active Substance: VITAMINS
  2. PROBIOTICS [Concomitant]
     Active Substance: PROBIOTICS NOS
  3. HERBAL T EAS [Concomitant]
  4. NP THYROID [Suspect]
     Active Substance: LEVOTHYROXINE\LIOTHYRONINE
     Indication: HYPOTHYROIDISM
     Dosage: ?          QUANTITY:1 TABLET(S);?
     Route: 048
     Dates: start: 20190725, end: 20200610

REACTIONS (24)
  - Dyspnoea [None]
  - Photosensitivity reaction [None]
  - Drug interaction [None]
  - Panic attack [None]
  - Recalled product administered [None]
  - Palpitations [None]
  - Weight decreased [None]
  - Fatigue [None]
  - Headache [None]
  - Memory impairment [None]
  - Disturbance in attention [None]
  - Eating disorder [None]
  - Decreased appetite [None]
  - Hypoaesthesia oral [None]
  - Thirst [None]
  - Insomnia [None]
  - Nausea [None]
  - Dizziness [None]
  - Depression [None]
  - Chest discomfort [None]
  - Swollen tongue [None]
  - Anxiety [None]
  - Vomiting [None]
  - Confusional state [None]

NARRATIVE: CASE EVENT DATE: 20200515
